FAERS Safety Report 6673156-8 (Version None)
Quarter: 2010Q2

REPORT INFORMATION
  Report Type: 
  Country: None (occurrence: None)
  Receive Date: 20100408
  Receipt Date: 20100402
  Transmission Date: 20101027
  Serious: Yes (Other)
  Sender: FDA-Public Use
  Company Number: US-RB-027102-09

PATIENT
  Sex: Female

DRUGS (5)
  1. SUBOXONE [Suspect]
     Route: 060
     Dates: start: 20091201
  2. SUBOXONE [Suspect]
     Dosage: TAPERING DOSES (UNKNOWN EXACT DETAILS)
     Route: 060
  3. SEROQUEL [Concomitant]
     Indication: INSOMNIA
     Dosage: DOSING DETAILS UNKNOWN
     Route: 065
  4. LUNESTA [Concomitant]
     Indication: INSOMNIA
     Dosage: DOSING DETAILS UNKNOWN
     Route: 065
  5. PRISTIQ [Concomitant]
     Indication: DEPRESSION
     Dosage: DOSING DETAILS UNKNOWN
     Route: 065
     Dates: start: 20100201

REACTIONS (8)
  - DEPRESSION [None]
  - FATIGUE [None]
  - FEELING DRUNK [None]
  - LARYNGITIS [None]
  - LETHARGY [None]
  - OEDEMA PERIPHERAL [None]
  - SOMNOLENCE [None]
  - SUICIDAL IDEATION [None]
